FAERS Safety Report 23716750 (Version 4)
Quarter: 2025Q3

REPORT INFORMATION
  Report Type: Spontaneous
  Country: EU (occurrence: EU)
  Receive Date: 20240408
  Receipt Date: 20250709
  Transmission Date: 20251021
  Serious: Yes (Other)
  Sender: AUROBINDO
  Company Number: EU-JNJFOC-20240339191

PATIENT
  Age: 20 Year
  Sex: Male

DRUGS (19)
  1. LORAZEPAM [Suspect]
     Active Substance: LORAZEPAM
     Indication: Schizophrenia
     Route: 065
  2. LORAZEPAM [Suspect]
     Active Substance: LORAZEPAM
     Indication: Anxiety
  3. LORAZEPAM [Suspect]
     Active Substance: LORAZEPAM
     Indication: Obsessive-compulsive disorder
  4. LORAZEPAM [Suspect]
     Active Substance: LORAZEPAM
     Indication: Paranoia
  5. LORAZEPAM [Suspect]
     Active Substance: LORAZEPAM
     Indication: Behaviour disorder
  6. LITHIUM CARBONATE [Suspect]
     Active Substance: LITHIUM CARBONATE
     Indication: Schizophrenia
     Route: 065
  7. LITHIUM CARBONATE [Suspect]
     Active Substance: LITHIUM CARBONATE
     Indication: Obsessive-compulsive disorder
  8. LITHIUM CARBONATE [Suspect]
     Active Substance: LITHIUM CARBONATE
     Indication: Paranoia
  9. LITHIUM CARBONATE [Suspect]
     Active Substance: LITHIUM CARBONATE
     Indication: Anxiety
  10. LITHIUM CARBONATE [Suspect]
     Active Substance: LITHIUM CARBONATE
     Indication: Behaviour disorder
  11. RISPERDAL [Suspect]
     Active Substance: RISPERIDONE
     Indication: Schizophrenia
     Route: 065
  12. RISPERDAL [Suspect]
     Active Substance: RISPERIDONE
     Indication: Obsessive-compulsive symptom
     Route: 065
  13. RISPERDAL [Suspect]
     Active Substance: RISPERIDONE
     Indication: Anxiety
     Route: 065
  14. RISPERDAL [Suspect]
     Active Substance: RISPERIDONE
     Indication: Behaviour disorder
     Route: 065
  15. RISPERDAL [Suspect]
     Active Substance: RISPERIDONE
     Indication: Paranoia
     Route: 065
  16. LURASIDONE [Concomitant]
     Active Substance: LURASIDONE
     Indication: Obsessive-compulsive symptom
     Route: 065
  17. LURASIDONE [Concomitant]
     Active Substance: LURASIDONE
     Route: 065
  18. LURASIDONE [Concomitant]
     Active Substance: LURASIDONE
     Route: 065
  19. LURASIDONE [Concomitant]
     Active Substance: LURASIDONE
     Route: 065

REACTIONS (9)
  - Blood prolactin increased [Recovered/Resolved]
  - Hyperprolactinaemia [Recovered/Resolved]
  - Drug ineffective [Recovered/Resolved]
  - Hypokinesia [Recovered/Resolved]
  - Weight increased [Recovered/Resolved]
  - Therapeutic product effect decreased [Unknown]
  - Bradykinesia [Recovered/Resolved]
  - Obsessive-compulsive symptom [Recovered/Resolved]
  - Apraxia [Recovered/Resolved]
